FAERS Safety Report 15704613 (Version 2)
Quarter: 2019Q1

REPORT INFORMATION
  Report Type: Spontaneous
  Country: US (occurrence: US)
  Receive Date: 20181210
  Receipt Date: 20190111
  Transmission Date: 20190417
  Serious: Yes (Hospitalization, Other)
  Sender: FDA-Public Use
  Company Number: US-PFIZER INC-2018503520

PATIENT
  Age: 72 Year
  Sex: Female

DRUGS (9)
  1. VERAPAMIL HCL [Suspect]
     Active Substance: VERAPAMIL HYDROCHLORIDE
     Indication: HYPERTENSION
  2. VERAPAMIL HCL [Suspect]
     Active Substance: VERAPAMIL HYDROCHLORIDE
     Indication: STENT PLACEMENT
  3. ZIOPTAN [Concomitant]
     Active Substance: TAFLUPROST
     Indication: GLAUCOMA
     Dosage: 2 GTT, 1X/DAY (1 DROP IN EACH EYE AT NIGHT)
     Route: 047
     Dates: start: 200801
  4. PRASUGREL. [Concomitant]
     Active Substance: PRASUGREL
     Dosage: 10 MG, 1X/DAY
  5. VERAPAMIL HCL [Suspect]
     Active Substance: VERAPAMIL HYDROCHLORIDE
     Indication: MYOCARDIAL INFARCTION
     Dosage: 40 MG, 2X/DAY [MORNING 1 TABLET: EVENING 1 TABLET]
     Route: 048
     Dates: start: 201804, end: 201811
  6. ALPHAGAN P [Concomitant]
     Active Substance: BRIMONIDINE TARTRATE
     Indication: GLAUCOMA
     Dosage: 2 GTT, 1X/DAY (1 DROP IN EACH EYE EVERY NIGHT)
     Route: 047
     Dates: start: 200501
  7. VENTOLIN [Concomitant]
     Active Substance: ALBUTEROL SULFATE
     Dosage: UNK, AS NEEDED
  8. ASPIRIN [ACETYLSALICYLIC ACID] [Concomitant]
     Active Substance: ASPIRIN
     Dosage: UNK, 1X/DAY
  9. TYLENOL [Concomitant]
     Active Substance: ACETAMINOPHEN
     Dosage: UNK

REACTIONS (8)
  - Back pain [Not Recovered/Not Resolved]
  - Gait disturbance [Not Recovered/Not Resolved]
  - Peripheral swelling [Not Recovered/Not Resolved]
  - Vision blurred [Recovered/Resolved]
  - Constipation [Recovered/Resolved]
  - Weight increased [Recovered/Resolved]
  - Lethargy [Recovered/Resolved]
  - Skin irritation [Recovered/Resolved]

NARRATIVE: CASE EVENT DATE: 2018
